FAERS Safety Report 23303634 (Version 1)
Quarter: 2023Q4

REPORT INFORMATION
  Report Type: Spontaneous
  Country: US (occurrence: None)
  Receive Date: 20231215
  Receipt Date: 20231215
  Transmission Date: 20240110
  Serious: Yes (Death)
  Sender: FDA-Public Use
  Company Number: None

PATIENT
  Age: 78 Year
  Sex: Female
  Weight: 86.5 kg

DRUGS (1)
  1. RISANKIZUMAB [Suspect]
     Active Substance: RISANKIZUMAB
     Indication: Crohn^s disease
     Dates: start: 20231101

REACTIONS (3)
  - Infusion related reaction [None]
  - Myocardial infarction [None]
  - Anaphylactic reaction [None]

NARRATIVE: CASE EVENT DATE: 20231101
